FAERS Safety Report 13384928 (Version 1)
Quarter: 2017Q1

REPORT INFORMATION
  Report Type: Spontaneous
  Country: US (occurrence: US)
  Receive Date: 20170330
  Receipt Date: 20170330
  Transmission Date: 20170429
  Serious: No
  Sender: FDA-Public Use
  Company Number: None

PATIENT

DRUGS (1)
  1. ABILIFY [Suspect]
     Active Substance: ARIPIPRAZOLE

REACTIONS (6)
  - Spinal disorder [None]
  - Intervertebral disc degeneration [None]
  - Bipolar disorder [None]
  - Seizure [None]
  - Carpal tunnel syndrome [None]
  - Dementia [None]
